FAERS Safety Report 5324513-3 (Version None)
Quarter: 2007Q2

REPORT INFORMATION
  Report Type: 
  Country: None (occurrence: None)
  Receive Date: 20070514
  Receipt Date: 20070503
  Transmission Date: 20071010
  Serious: Yes (Other)
  Sender: FDA-Public Use
  Company Number: US-PFIZER INC-2007016678

PATIENT
  Sex: Female

DRUGS (11)
  1. CHANTIX [Suspect]
     Indication: EX-SMOKER
  2. NORVASC [Interacting]
  3. BENADRYL [Interacting]
  4. NEURONTIN [Interacting]
  5. TRAMADOL HCL [Interacting]
  6. RISPERDAL [Interacting]
     Indication: SCHIZOAFFECTIVE DISORDER
  7. GABAPENTIN [Concomitant]
     Dosage: DAILY DOSE:400MG
  8. CYMBALTA [Concomitant]
     Dosage: DAILY DOSE:60MG
  9. CHLORZOXAZONE [Concomitant]
  10. DARVON [Concomitant]
  11. DIOVAN HCT [Concomitant]

REACTIONS (8)
  - ABNORMAL DREAMS [None]
  - DRUG INTERACTION [None]
  - EXCESSIVE EYE BLINKING [None]
  - HYPERPHAGIA [None]
  - MUSCLE TIGHTNESS [None]
  - MUSCLE TWITCHING [None]
  - NERVOUSNESS [None]
  - WEIGHT INCREASED [None]
